FAERS Safety Report 26076393 (Version 3)
Quarter: 2025Q4

REPORT INFORMATION
  Report Type: Spontaneous
  Country: None (occurrence: EU)
  Receive Date: 20251121
  Receipt Date: 20251224
  Transmission Date: 20260118
  Serious: Yes (Other)
  Sender: ALNYLAM PHARMACEUTICALS
  Company Number: EU-ALNYLAM PHARMACEUTICALS, INC.-ALN-2025-007259

PATIENT

DRUGS (1)
  1. AMVUTTRA [Suspect]
     Active Substance: VUTRISIRAN
     Indication: Primary amyloidosis
     Dosage: UNK
     Route: 065

REACTIONS (9)
  - Cardiac failure [Unknown]
  - Muscular weakness [Unknown]
  - Muscle atrophy [Unknown]
  - Areflexia [Unknown]
  - Sensory disturbance [Unknown]
  - Ill-defined disorder [Unknown]
  - Bladder catheterisation [Unknown]
  - Gastrointestinal tube insertion [Unknown]
  - Treatment noncompliance [Unknown]
